FAERS Safety Report 6588112-8 (Version None)
Quarter: 2010Q1

REPORT INFORMATION
  Report Type: 
  Country: None (occurrence: None)
  Receive Date: 20100217
  Receipt Date: 20100217
  Transmission Date: 20100710
  Serious: Yes (Hospitalization)
  Sender: FDA-Public Use
  Company Number: None

PATIENT
  Sex: Male
  Weight: 115.33 kg

DRUGS (2)
  1. FLUOROURACIL [Suspect]
     Dosage: 5600 MG
     Dates: end: 20100205
  2. ELOXATIN [Suspect]
     Dosage: 170 MG
     Dates: end: 20100204

REACTIONS (2)
  - DEEP VEIN THROMBOSIS [None]
  - PULMONARY EMBOLISM [None]
